FAERS Safety Report 7550229-9 (Version None)
Quarter: 2011Q2

REPORT INFORMATION
  Report Type: 
  Country: None (occurrence: None)
  Receive Date: 20110615
  Receipt Date: 20110602
  Transmission Date: 20111010
  Serious: Yes (Hospitalization)
  Sender: FDA-Public Use
  Company Number: JP-UCBSA-015495

PATIENT
  Sex: Female
  Weight: 47.8 kg

DRUGS (34)
  1. PREDNISOLONE [Concomitant]
     Dates: start: 20060613
  2. FAMOTIDINE [Concomitant]
     Dates: start: 20081020
  3. SODIUM AZULENE SULFONATE L-GLUTAMINE [Concomitant]
     Dates: start: 20110427
  4. DIFLUCORTOLONE VALERATE [Concomitant]
     Dosage: ADEQUATE DOSE
     Dates: start: 20110330
  5. SULFASALAZINE [Concomitant]
     Dosage: ONE-POINT SUSPENSION OF THE ADMINISTRATION
     Dates: start: 20081020
  6. PREDNISOLONE [Concomitant]
     Dates: start: 20110427
  7. FAMOTIDINE [Concomitant]
     Dates: start: 20110427
  8. ATORVASTATIN CALCIUM [Concomitant]
     Dates: start: 20100203
  9. THEOPHYLLINE [Concomitant]
     Dates: start: 20060101
  10. SODIUM AZULENE SULFONATE L-GLUTAMINE [Concomitant]
     Dates: start: 20060613
  11. VIDARABINE [Concomitant]
     Dosage: ADEQUATE DOSE
     Dates: start: 20100804
  12. ISONIAZID [Concomitant]
     Dates: start: 20090803
  13. AMPHOTERICIN B [Concomitant]
     Dates: start: 20100623
  14. LIRANAFTATE [Concomitant]
     Dosage: ADEQUATE DOSE
     Dates: start: 20100823
  15. SULFAMETHOXAZOLE AND TRIMETHOPRIM [Concomitant]
     Dosage: 4 TABLETS A WEEK
     Dates: start: 20110302
  16. CERTOLIZUMAB PEGOL [Suspect]
     Route: 058
     Dates: end: 20110413
  17. LOXOPROFEN SODIUM [Concomitant]
     Dosage: ADEQUATE DOSE
     Dates: start: 20100414
  18. THEOPHYLLINE [Concomitant]
     Dates: start: 20110427
  19. SENNOSIDE [Concomitant]
     Dates: start: 20060613
  20. BUCILLAMINE [Concomitant]
     Dates: start: 20070625, end: 20100803
  21. OLOPATADINE HYDROCHLORIDE [Concomitant]
     Dates: start: 20100617, end: 20100625
  22. CERTOLIZUMAB PEGOL [Suspect]
     Indication: RHEUMATOID ARTHRITIS
     Route: 058
     Dates: start: 20091210, end: 20100707
  23. SULFASALAZINE [Concomitant]
     Dates: start: 20110502
  24. AURANOFIN [Concomitant]
     Dates: start: 20070402, end: 20101012
  25. SODIUM RISEDRONATE HYDRATE [Concomitant]
     Dosage: ONE POINT SUSPENSION OF THE ADMINISTRATION
     Dates: start: 20081020
  26. SENNOSIDE [Concomitant]
     Dates: start: 20110302
  27. AMPHOTERICIN B [Concomitant]
     Dates: start: 20110427
  28. TERBINAFINE HYDROCHLORIDE [Concomitant]
     Dates: start: 20101111
  29. ATORVASTATIN CALCIUM [Concomitant]
     Dates: start: 20110427
  30. DIFLUCORTOLONE VALERATE [Concomitant]
     Dosage: ADEQUATE DOSE
     Dates: start: 20100617, end: 20100625
  31. PREDNISOLONE [Concomitant]
     Dates: start: 20100527, end: 20100721
  32. ISONIAZID [Concomitant]
     Dates: start: 20110427
  33. LIRANAFTATE [Concomitant]
     Dosage: ADEQUATE DOSE
     Dates: start: 20110330
  34. SENNOSIDE [Concomitant]
     Dosage: 24 MG PRN
     Dates: start: 20110302

REACTIONS (2)
  - DERMAL CYST [None]
  - DIZZINESS [None]
